FAERS Safety Report 10384302 (Version 1)
Quarter: 2014Q3

REPORT INFORMATION
  Report Type: Spontaneous
  Country: US (occurrence: US)
  Receive Date: 20140814
  Receipt Date: 20140814
  Transmission Date: 20150326
  Serious: No
  Sender: FDA-Public Use
  Company Number: US-PFIZER INC-2014224039

PATIENT

DRUGS (1)
  1. XANAX [Suspect]
     Active Substance: ALPRAZOLAM
     Dosage: UNK

REACTIONS (7)
  - Post-traumatic stress disorder [Unknown]
  - Fibromyalgia [Unknown]
  - Pain [Unknown]
  - Somnolence [Unknown]
  - Panic attack [Unknown]
  - Therapeutic response changed [Unknown]
  - Feeling of relaxation [Unknown]
